FAERS Safety Report 10082788 (Version 1)
Quarter: 2014Q2

REPORT INFORMATION
  Report Type: Spontaneous
  Country: US (occurrence: US)
  Receive Date: 20140416
  Receipt Date: 20140416
  Transmission Date: 20141212
  Serious: Yes (Hospitalization, Other)
  Sender: FDA-Public Use
  Company Number: US-RB-066143-14

PATIENT
  Sex: Male

DRUGS (8)
  1. SUBOXONE TABLET [Suspect]
     Indication: PAIN
     Dosage: STARTING WITH 16 MG AND INCREASED DOSE TO 32 MG DAILY.
     Route: 060
     Dates: start: 2007
  2. SUBOXONE FILM [Suspect]
     Indication: PAIN
     Dosage: SUBOXONE FILM; TAKING FROM 16 TO 32 MG DAILY
     Route: 065
  3. SUBOXONE FILM [Suspect]
     Dosage: SUBOXONE FILM
     Route: 060
     Dates: start: 201403
  4. METHADONE [Suspect]
     Indication: PAIN
     Dosage: DOSING DETAILS UNKNOWN
     Route: 048
  5. FENTANYL [Suspect]
     Indication: PAIN
     Dosage: DOSING DETAILS UNKNOWN
     Route: 062
     Dates: start: 201403, end: 201403
  6. OXYCONTIN [Concomitant]
     Indication: PAIN
     Dosage: DOSING DETAILS UNKNOWN
     Route: 065
  7. TESTOSTERONE [Concomitant]
     Indication: BLOOD TESTOSTERONE DECREASED
     Dosage: DOSING DETAILS UNKNOWN
     Route: 048
  8. ANTIHYPERTENSIVES [Concomitant]
     Indication: HYPERTENSION
     Dosage: DOSING DETAILS UNKNOWN
     Route: 048

REACTIONS (7)
  - Off label use [Not Recovered/Not Resolved]
  - Drug ineffective for unapproved indication [Unknown]
  - Pain [Recovered/Resolved]
  - Dyspnoea [Recovered/Resolved]
  - Confusional state [Recovered/Resolved]
  - Speech disorder [Recovered/Resolved]
  - Drug detoxification [Recovered/Resolved]
